FAERS Safety Report 25964264 (Version 1)
Quarter: 2025Q4

REPORT INFORMATION
  Report Type: Spontaneous
  Country: CN (occurrence: CN)
  Receive Date: 20251027
  Receipt Date: 20251027
  Transmission Date: 20260118
  Serious: Yes (Death)
  Sender: PURDUE
  Company Number: CN-NAPPMUNDI-GBR-2025-0129828

PATIENT
  Age: 78 Year
  Sex: Female
  Weight: 50 kg

DRUGS (1)
  1. OXYCODONE HYDROCHLORIDE [Suspect]
     Active Substance: OXYCODONE HYDROCHLORIDE
     Indication: Cancer pain
     Dosage: 80 MILLIGRAM, BID
     Route: 048
     Dates: start: 20250809, end: 20251015

REACTIONS (5)
  - Metastasis [Fatal]
  - Logorrhoea [Unknown]
  - Hallucination [Unknown]
  - Somnolence [Unknown]
  - Confusional state [Unknown]

NARRATIVE: CASE EVENT DATE: 20250101
